FAERS Safety Report 4844802-6 (Version None)
Quarter: 2005Q4

REPORT INFORMATION
  Report Type: 
  Country: None (occurrence: None)
  Receive Date: 20051205
  Receipt Date: 20051129
  Transmission Date: 20060501
  Serious: Yes (Other)
  Sender: FDA-Public Use
  Company Number: JP-BRISTOL-MYERS SQUIBB COMPANY-13200621

PATIENT
  Age: 51 Year
  Sex: Female

DRUGS (7)
  1. ZERIT [Suspect]
     Indication: HIV INFECTION
     Route: 048
     Dates: start: 20040527, end: 20050203
  2. STOCRIN [Suspect]
     Indication: HIV INFECTION
     Route: 048
     Dates: start: 20040527
  3. EPIVIR [Suspect]
     Indication: HIV INFECTION
     Route: 048
     Dates: start: 20040527
  4. RETROVIR [Concomitant]
     Route: 048
     Dates: start: 20050204
  5. PAXIL [Concomitant]
     Route: 048
     Dates: start: 20040514, end: 20040604
  6. COTRIM [Concomitant]
     Route: 048
     Dates: start: 20040312, end: 20050216
  7. RIZE [Concomitant]
     Route: 048
     Dates: start: 20040514, end: 20040726

REACTIONS (2)
  - BLOOD LACTIC ACID INCREASED [None]
  - BLOOD URIC ACID INCREASED [None]
